FAERS Safety Report 10152352 (Version 1)
Quarter: 2014Q2

REPORT INFORMATION
  Report Type: Spontaneous
  Country: US (occurrence: None)
  Receive Date: 20140502
  Receipt Date: 20140502
  Transmission Date: 20141212
  Serious: No
  Sender: FDA-Public Use
  Company Number: None

PATIENT
  Age: 69 Year
  Sex: Female
  Weight: 58.06 kg

DRUGS (1)
  1. PREDNISOLONE ACETATE [Suspect]
     Indication: CORNEAL TRANSPLANT
     Route: 031
     Dates: start: 20140328, end: 20140425

REACTIONS (6)
  - Pruritus [None]
  - Burning sensation [None]
  - Erythema [None]
  - Rash [None]
  - Eye irritation [None]
  - Photophobia [None]
